FAERS Safety Report 8840724 (Version 1)
Quarter: 2012Q4

REPORT INFORMATION
  Report Type: 
  Country: PL (occurrence: PL)
  Receive Date: 20121015
  Receipt Date: 20121015
  Transmission Date: 20130627
  Serious: Yes (Other)
  Sender: FDA-Public Use
  Company Number: PL-PFIZER INC-2012243445

PATIENT
  Age: 52 Year
  Sex: Male

DRUGS (5)
  1. AMLODIPINE BESILATE [Suspect]
     Indication: HYPERTENSION
     Dosage: 10 mg, UNK
  2. ISOSORBIDE MONONITRATE [Suspect]
     Indication: HYPERTENSION
     Dosage: 100 mg, UNK
  3. BISOPROLOL FUMARATE [Suspect]
     Indication: HYPERTENSION
     Dosage: 5 mg, UNK
  4. CILAZAPRIL [Suspect]
     Indication: HYPERTENSION
     Dosage: 7.5 mg, UNK
  5. CLONIDINE [Suspect]
     Indication: HYPERTENSION
     Dosage: 150 ug, 3x/day

REACTIONS (2)
  - Hypertension [Unknown]
  - Hypertensive crisis [Recovered/Resolved]
